FAERS Safety Report 4663713-2 (Version None)
Quarter: 2005Q2

REPORT INFORMATION
  Report Type: 
  Country: None (occurrence: None)
  Receive Date: 20050516
  Receipt Date: 20050502
  Transmission Date: 20051028
  Serious: Yes (Hospitalization, Other)
  Sender: FDA-Public Use
  Company Number: 2005071457

PATIENT
  Age: 63 Year
  Sex: Female
  Weight: 80.831 kg

DRUGS (15)
  1. CELEBREX [Suspect]
     Indication: ARTHRITIS
     Dosage: ORAL
     Route: 048
  2. BEXTRA [Suspect]
     Indication: ARTHRITIS
     Dosage: ORAL
     Route: 048
  3. ROFECOXIB [Suspect]
     Indication: ARTHRITIS
  4. CALCIUM CARBONATE (CALCIUM CARBONATE) [Suspect]
     Indication: DYSPEPSIA
     Dosage: (AS NECESSARY), ORAL
     Route: 048
     Dates: start: 19750101
  5. LEVOTHYROXINE SODIUM [Concomitant]
  6. METOPROLOL SUCCINATE [Concomitant]
  7. RANITIDINE HYDROCHLORIDE [Concomitant]
  8. ASPIRIN [Concomitant]
  9. ROSIGLITAZONE MALEATE [Concomitant]
  10. AMLODIPINE BESYLATE [Concomitant]
  11. ISOSORBIDE MONONITRATE [Concomitant]
  12. RAMIPRIL [Concomitant]
  13. CLOPIDOGREL BISULFATE [Concomitant]
  14. CLONIDINE [Concomitant]
  15. ATORVASTATIN CALCIUM [Concomitant]

REACTIONS (7)
  - ANAEMIA [None]
  - IATROGENIC INJURY [None]
  - MYOCARDIAL INFARCTION [None]
  - POST PROCEDURAL COMPLICATION [None]
  - PROCEDURAL COMPLICATION [None]
  - RENAL FAILURE ACUTE [None]
  - TOOTH INFECTION [None]
